FAERS Safety Report 5443775-5 (Version None)
Quarter: 2007Q3

REPORT INFORMATION
  Report Type: 
  Country: None (occurrence: None)
  Receive Date: 20070905
  Receipt Date: 20070828
  Transmission Date: 20080115
  Serious: Yes (Hospitalization)
  Sender: FDA-Public Use
  Company Number: CH-PFIZER INC-2007071200

PATIENT
  Age: 86 Year
  Sex: Female

DRUGS (9)
  1. FRAGMIN [Suspect]
     Route: 058
     Dates: start: 20070701, end: 20070701
  2. SINTROM [Suspect]
     Dosage: FREQ:AS NECESSARY
     Route: 048
     Dates: start: 20070701, end: 20070701
  3. ASPIRIN [Suspect]
     Route: 048
     Dates: start: 20070701, end: 20070701
  4. ENATEC [Concomitant]
     Dosage: DAILY DOSE:10MG-FREQ:DAILY
     Route: 048
  5. METOPROLOL SUCCINATE [Concomitant]
     Route: 048
  6. METFORMIN HCL [Concomitant]
     Dosage: DAILY DOSE:1000MG-FREQ:DAILY
     Route: 048
  7. LASIX [Concomitant]
     Dosage: DAILY DOSE:80MG-FREQ:DAILY
     Route: 048
  8. NITRODERM [Concomitant]
     Route: 062
  9. SORTIS [Concomitant]
     Route: 048

REACTIONS (3)
  - ANAEMIA [None]
  - GASTRIC ULCER [None]
  - GASTROINTESTINAL HAEMORRHAGE [None]
